FAERS Safety Report 19400395 (Version 3)
Quarter: 2021Q2

REPORT INFORMATION
  Report Type: Spontaneous
  Country: US (occurrence: US)
  Receive Date: 20210610
  Receipt Date: 20210625
  Transmission Date: 20210717
  Serious: Yes (Hospitalization)
  Sender: FDA-Public Use
  Company Number: US-ROCHE-2842805

PATIENT
  Age: 22 Year
  Sex: Female

DRUGS (6)
  1. XOLAIR [Suspect]
     Active Substance: OMALIZUMAB
     Route: 065
     Dates: start: 20210616
  2. XOLAIR [Suspect]
     Active Substance: OMALIZUMAB
     Indication: PRODUCT USED FOR UNKNOWN INDICATION
     Route: 065
  3. XOLAIR [Suspect]
     Active Substance: OMALIZUMAB
     Route: 065
     Dates: start: 20210413
  4. XOLAIR [Suspect]
     Active Substance: OMALIZUMAB
     Route: 065
     Dates: start: 20210602
  5. AD26.COV2.S. [Suspect]
     Active Substance: AD26.COV2.S
     Indication: PRODUCT USED FOR UNKNOWN INDICATION
     Route: 065
     Dates: start: 20210407, end: 20210407
  6. LOVENOX [Concomitant]
     Active Substance: ENOXAPARIN SODIUM

REACTIONS (11)
  - Hypoaesthesia [Unknown]
  - Nervous system disorder [Unknown]
  - Loss of consciousness [Unknown]
  - Sensory loss [Unknown]
  - Paraesthesia [Unknown]
  - Skin discolouration [Unknown]
  - Chest pain [Unknown]
  - Fall [Unknown]
  - Heart rate increased [Unknown]
  - Muscle spasms [Unknown]
  - Illness [Recovered/Resolved]

NARRATIVE: CASE EVENT DATE: 20210407
